FAERS Safety Report 5154978-1 (Version None)
Quarter: 2006Q4

REPORT INFORMATION
  Report Type: 
  Country: None (occurrence: None)
  Receive Date: 20061121
  Receipt Date: 20061109
  Transmission Date: 20070319
  Serious: Yes (Hospitalization, Other)
  Sender: FDA-Public Use
  Company Number: ES-ELI_LILLY_AND_COMPANY-ES200611001784

PATIENT
  Age: 26 Year
  Sex: Female

DRUGS (1)
  1. XIGRIS [Suspect]
     Indication: SEPSIS
     Dosage: UNK, OTHER
     Route: 042
     Dates: start: 20061103, end: 20061105

REACTIONS (1)
  - THROMBOCYTOPENIA [None]
